FAERS Safety Report 6293811-1 (Version None)
Quarter: 2009Q3

REPORT INFORMATION
  Report Type: 
  Country: None (occurrence: None)
  Receive Date: 20090803
  Receipt Date: 20090723
  Transmission Date: 20100115
  Serious: Yes (Hospitalization)
  Sender: FDA-Public Use
  Company Number: PHHO2009US09258

PATIENT
  Sex: Male
  Weight: 47.62 kg

DRUGS (2)
  1. RAD 666 RAD+TAB [Suspect]
     Indication: NEOPLASM MALIGNANT
     Dosage: 50 MG
     Route: 048
     Dates: start: 20090505, end: 20090713
  2. EPO 906 [Suspect]
     Indication: NEOPLASM MALIGNANT
     Dosage: 80 MG/M^2
     Route: 042
     Dates: start: 20090505, end: 20090713

REACTIONS (4)
  - APPENDICITIS [None]
  - BLOOD GLUCOSE INCREASED [None]
  - BLOOD PHOSPHORUS DECREASED [None]
  - BLOOD SODIUM DECREASED [None]
